FAERS Safety Report 19188853 (Version 2)
Quarter: 2024Q4

REPORT INFORMATION
  Report Type: Spontaneous
  Country: GB (occurrence: GB)
  Receive Date: 20210428
  Receipt Date: 20241115
  Transmission Date: 20250115
  Serious: Yes (Disabling, Other)
  Sender: TEVA
  Company Number: GB-MHRA-EYC 00247323

PATIENT
  Age: 66 Year
  Sex: Male
  Weight: 102 kg

DRUGS (4)
  1. MODAFINIL [Suspect]
     Active Substance: MODAFINIL
     Indication: Narcolepsy
     Dosage: DOSAGE TEXT:  NUMBER OF SEPARATE DOSES: 1
     Route: 048
     Dates: start: 20130717, end: 20210102
  2. FLUTICASONE FUROATE\VILANTEROL TRIFENATATE [Concomitant]
     Active Substance: FLUTICASONE FUROATE\VILANTEROL TRIFENATATE
     Indication: Chronic obstructive pulmonary disease
     Route: 055
  3. INCRUSE ELLIPTA [Concomitant]
     Active Substance: UMECLIDINIUM BROMIDE
     Indication: Chronic obstructive pulmonary disease
     Route: 055
  4. VENTOLIN [Concomitant]
     Active Substance: ALBUTEROL SULFATE
     Indication: Chronic obstructive pulmonary disease
     Route: 055

REACTIONS (6)
  - Confusional state [Recovering/Resolving]
  - Amnesia [Recovering/Resolving]
  - Memory impairment [Recovering/Resolving]
  - Disturbance in attention [Unknown]
  - Mental impairment [Unknown]
  - Sleep attacks [Unknown]

NARRATIVE: CASE EVENT DATE: 20140131
